FAERS Safety Report 15269621 (Version 6)
Quarter: 2019Q2

REPORT INFORMATION
  Report Type: Report from Study
  Country: IT (occurrence: IT)
  Receive Date: 20180813
  Receipt Date: 20190528
  Transmission Date: 20190711
  Serious: Yes (Death, Hospitalization)
  Sender: FDA-Public Use
  Company Number: IT-ROCHE-2164647

PATIENT
  Age: 72 Year
  Sex: Male
  Weight: 80 kg

DRUGS (20)
  1. GEMCITABINE [Suspect]
     Active Substance: GEMCITABINE\GEMCITABINE HYDROCHLORIDE
     Indication: TRANSITIONAL CELL CARCINOMA
     Dosage: DATE OF MOST RECENT DOSE OF GEMCITABINE OF 1629 MG/M2 PRIOR TO SAE ONSET 18/JUL/2018.
     Route: 042
     Dates: start: 20180412
  2. CARBOPLATIN. [Suspect]
     Active Substance: CARBOPLATIN
     Indication: TRANSITIONAL CELL CARCINOMA
     Dosage: DOSE: AT DOSES TO ACHIEVE AREA UNDER THE CONCENTRATION-TIME CURVE (AUC) OF 4.5 MG/ML/MIN ?DATE OF MO
     Route: 042
     Dates: start: 20180412
  3. OXYCODON [Concomitant]
     Active Substance: OXYCODONE
     Indication: GROIN PAIN
     Route: 048
     Dates: start: 20180324, end: 20181002
  4. OXYCODON [Concomitant]
     Active Substance: OXYCODONE
     Indication: PAIN IN EXTREMITY
     Route: 048
     Dates: start: 20181003
  5. OXYCODON [Concomitant]
     Active Substance: OXYCODONE
     Indication: PAIN IN EXTREMITY
     Route: 048
     Dates: start: 20180323
  6. TAPAZOLE [Concomitant]
     Active Substance: METHIMAZOLE
     Indication: HYPERTHYROIDISM
     Route: 048
     Dates: start: 20180905
  7. ATEZOLIZUMAB. [Suspect]
     Active Substance: ATEZOLIZUMAB
     Indication: TRANSITIONAL CELL CARCINOMA
     Dosage: DATE OF MOST RECENT DOSE OF BLINDED ATEZOLIZUMAB PRIOR TO SAE ONSET 11/JUL/2018?DATE OF MOST RECENT
     Route: 042
     Dates: start: 20180412
  8. DEPALGOS [Concomitant]
     Active Substance: ACETAMINOPHEN\OXYCODONE HYDROCHLORIDE
     Indication: PAIN IN EXTREMITY
  9. LYRICA [Concomitant]
     Active Substance: PREGABALIN
     Indication: PAIN IN EXTREMITY
  10. DELTACORTENE [Concomitant]
     Active Substance: PREDNISONE
     Indication: PYREXIA
     Route: 048
     Dates: start: 20180718
  11. ORAMORPH [MORPHINE SULFATE] [Concomitant]
     Indication: PAIN IN EXTREMITY
  12. BLOOD [Concomitant]
     Active Substance: WHOLE BLOOD
     Indication: ANAEMIA
     Route: 042
     Dates: start: 20180627, end: 20180627
  13. LYRICA [Concomitant]
     Active Substance: PREGABALIN
     Indication: GROIN PAIN
     Route: 048
     Dates: start: 20180919
  14. ORAMORPH [MORPHINE SULFATE] [Concomitant]
     Indication: GROIN PAIN
     Dosage: 5 ML/CM3
     Route: 048
     Dates: start: 20181003
  15. LEVOPRAID [LEVOSULPIRIDE] [Concomitant]
     Active Substance: LEVOSULPIRIDE
     Indication: NAUSEA
     Route: 048
     Dates: start: 20180620
  16. PARACETAMOL [Concomitant]
     Active Substance: ACETAMINOPHEN
     Indication: PYREXIA
     Route: 048
     Dates: start: 20180624
  17. DEPALGOS [Concomitant]
     Active Substance: ACETAMINOPHEN\OXYCODONE HYDROCHLORIDE
     Indication: GROIN PAIN
     Route: 048
     Dates: start: 20180808, end: 20181002
  18. ZOFRAN [Concomitant]
     Active Substance: ONDANSETRON HYDROCHLORIDE
     Indication: NAUSEA
     Route: 048
     Dates: start: 20180418
  19. FENTANYL. [Concomitant]
     Active Substance: FENTANYL
     Indication: GROIN PAIN
     Route: 048
     Dates: start: 20180323
  20. FENTANYL. [Concomitant]
     Active Substance: FENTANYL
     Indication: PAIN IN EXTREMITY

REACTIONS (2)
  - Pancytopenia [Recovered/Resolved]
  - Neutropenia [Fatal]

NARRATIVE: CASE EVENT DATE: 20180723
